FAERS Safety Report 8425599-X (Version None)
Quarter: 2012Q2

REPORT INFORMATION
  Report Type: 
  Country: None (occurrence: None)
  Receive Date: 20120611
  Receipt Date: 20120530
  Transmission Date: 20120825
  Serious: Yes (Life-Threatening, Hospitalization)
  Sender: FDA-Public Use
  Company Number: TR-MILLENNIUM PHARMACEUTICALS, INC.-2012-03754

PATIENT

DRUGS (4)
  1. VELCADE [Suspect]
     Dosage: UNK
     Dates: start: 20120322
  2. ZOMETA [Concomitant]
     Dosage: UNK
     Dates: start: 20110914
  3. VELCADE [Suspect]
     Indication: MULTIPLE MYELOMA
     Dosage: UNK
     Route: 065
     Dates: start: 20111222, end: 20120312
  4. DEXAMETHASONE [Concomitant]
     Indication: MULTIPLE MYELOMA
     Dosage: UNK
     Dates: start: 20111222

REACTIONS (2)
  - PNEUMONIA [None]
  - ASTHMA [None]
